FAERS Safety Report 6139780-6 (Version None)
Quarter: 2009Q2

REPORT INFORMATION
  Report Type: 
  Country: None (occurrence: None)
  Receive Date: 20090401
  Receipt Date: 20090401
  Transmission Date: 20091009
  Serious: Yes (Hospitalization)
  Sender: FDA-Public Use
  Company Number: B0508516A

PATIENT
  Age: 55 Year
  Sex: Female

DRUGS (6)
  1. NABUCOX [Suspect]
     Dosage: 500MG TWICE PER DAY
     Route: 048
     Dates: start: 20061001, end: 20071101
  2. PIASCLEDINE [Concomitant]
     Dosage: 300MG PER DAY
     Route: 048
     Dates: start: 20060601
  3. EUPANTOL [Concomitant]
     Dosage: 20MG PER DAY
     Route: 048
     Dates: start: 20060601
  4. METHOCARBAMOL [Concomitant]
     Dosage: 500MG TWICE PER DAY
     Route: 048
     Dates: start: 20060601
  5. TETRAZEPAM [Concomitant]
     Dosage: 50MG PER DAY
     Route: 048
     Dates: start: 20060601
  6. EFFERALGAN [Concomitant]
     Dosage: 2TAB PER DAY
     Route: 048
     Dates: start: 20060601

REACTIONS (5)
  - ABDOMINAL PAIN UPPER [None]
  - FATIGUE [None]
  - GAMMA-GLUTAMYLTRANSFERASE INCREASED [None]
  - TRANSAMINASES INCREASED [None]
  - WEIGHT DECREASED [None]
